FAERS Safety Report 5908926-4 (Version None)
Quarter: 2008Q4

REPORT INFORMATION
  Report Type: 
  Country: None (occurrence: None)
  Receive Date: 20081006
  Receipt Date: 20080930
  Transmission Date: 20090506
  Serious: Yes (Other)
  Sender: FDA-Public Use
  Company Number: CA-ELI_LILLY_AND_COMPANY-CA200810000181

PATIENT
  Sex: Male

DRUGS (2)
  1. HUMULIN N [Suspect]
     Indication: DIABETES MELLITUS
     Dosage: 48 U, EACH MORNING
     Route: 058
  2. HUMULIN N [Suspect]
     Dosage: 25 U, EACH EVENING

REACTIONS (1)
  - MYOCARDIAL INFARCTION [None]
